FAERS Safety Report 11430636 (Version 1)
Quarter: 2015Q3

REPORT INFORMATION
  Report Type: Spontaneous
  Country: US (occurrence: US)
  Receive Date: 20150828
  Receipt Date: 20150828
  Transmission Date: 20151125
  Serious: No
  Sender: FDA-Public Use
  Company Number: PHEH2015US005735

PATIENT
  Age: 67 Year
  Sex: Female
  Weight: 50 kg

DRUGS (8)
  1. ARMOUR THYROID [Concomitant]
     Active Substance: THYROID, PORCINE\THYROID, UNSPECIFIED
     Indication: PRODUCT USED FOR UNKNOWN INDICATION
     Route: 065
  2. LEVOTHYROXINE. [Suspect]
     Active Substance: LEVOTHYROXINE
     Dosage: 0.75 UG, DAILY
     Route: 048
     Dates: start: 20150126, end: 20150129
  3. PROGESTERONE. [Suspect]
     Active Substance: PROGESTERONE
     Indication: HORMONE REPLACEMENT THERAPY
     Dosage: 1 DF, QD
     Route: 048
     Dates: start: 20141229, end: 20150101
  4. PREMARIN [Suspect]
     Active Substance: ESTROGENS, CONJUGATED
     Indication: HORMONE REPLACEMENT THERAPY
     Dosage: 1 DF, EVERY DAY
     Route: 048
     Dates: start: 20141201, end: 201412
  5. VIVELLE DOT [Suspect]
     Active Substance: ESTRADIOL
     Indication: HORMONE REPLACEMENT THERAPY
     Dosage: 0.025 MG, (ONE TIME) ON HIP
     Route: 062
     Dates: start: 20141229, end: 201501
  6. LEVOTHYROXINE. [Suspect]
     Active Substance: LEVOTHYROXINE
     Indication: THYROID DISORDER
     Dosage: 50 MCG ONE DAY ALTERNATING WITH 75 MCG THE NEXT DAY
     Route: 048
     Dates: start: 201310, end: 20150125
  7. LEVOXYL [Concomitant]
     Active Substance: LEVOTHYROXINE SODIUM
     Indication: PRODUCT USED FOR UNKNOWN INDICATION
     Route: 065
  8. SYNTHROID [Suspect]
     Active Substance: LEVOTHYROXINE SODIUM
     Indication: THYROID DISORDER
     Dosage: 75 MCG EVERY OTHER DAY ALTERNATING WITH 0.50 MCG TABLET
     Route: 048
     Dates: start: 1993

REACTIONS (15)
  - Pain [Recovered/Resolved]
  - Bronchitis [Recovered/Resolved]
  - Fatigue [Not Recovered/Not Resolved]
  - Arthralgia [Recovered/Resolved]
  - Insomnia [Not Recovered/Not Resolved]
  - Dysphonia [Not Recovered/Not Resolved]
  - Impaired work ability [Not Recovered/Not Resolved]
  - Abdominal distension [Recovered/Resolved]
  - Cough [Recovered/Resolved]
  - Depression [Recovered/Resolved]
  - Palpitations [Recovered/Resolved]
  - Oropharyngeal pain [Recovered/Resolved]
  - Weight increased [Not Recovered/Not Resolved]
  - Mental disorder [Recovered/Resolved]
  - Metabolic disorder [Not Recovered/Not Resolved]

NARRATIVE: CASE EVENT DATE: 201412
